FAERS Safety Report 20136763 (Version 7)
Quarter: 2022Q3

REPORT INFORMATION
  Report Type: Spontaneous
  Country: US (occurrence: US)
  Receive Date: 20211201
  Receipt Date: 20220708
  Transmission Date: 20221026
  Serious: Yes (Other)
  Sender: FDA-Public Use
  Company Number: US-ELI_LILLY_AND_COMPANY-US202111011151

PATIENT
  Age: 65 Year
  Sex: Female

DRUGS (9)
  1. EMGALITY [Suspect]
     Active Substance: GALCANEZUMAB-GNLM
     Indication: Product used for unknown indication
     Dosage: 120 MG, MONTHLY (1/M)
     Route: 058
     Dates: start: 20210805
  2. EMGALITY [Suspect]
     Active Substance: GALCANEZUMAB-GNLM
     Indication: Product used for unknown indication
     Dosage: 120 MG, MONTHLY (1/M)
     Route: 058
     Dates: start: 20210805
  3. EMGALITY [Suspect]
     Active Substance: GALCANEZUMAB-GNLM
     Indication: Product used for unknown indication
     Dosage: 120 MG, MONTHLY (1/M)
     Route: 058
     Dates: start: 20210805
  4. EMGALITY [Suspect]
     Active Substance: GALCANEZUMAB-GNLM
     Dosage: 240 MG, OTHER (LOADING DOSE)
     Route: 058
     Dates: start: 20220323
  5. EMGALITY [Suspect]
     Active Substance: GALCANEZUMAB-GNLM
     Dosage: 240 MG, OTHER (LOADING DOSE)
     Route: 058
     Dates: start: 20220323
  6. EMGALITY [Suspect]
     Active Substance: GALCANEZUMAB-GNLM
     Dosage: 240 MG, OTHER (LOADING DOSE)
     Route: 058
     Dates: start: 20220323
  7. EMGALITY [Suspect]
     Active Substance: GALCANEZUMAB-GNLM
     Dosage: 120 MG, MONTHLY (1/M)
     Route: 058
  8. EMGALITY [Suspect]
     Active Substance: GALCANEZUMAB-GNLM
     Dosage: 120 MG, MONTHLY (1/M)
     Route: 058
  9. EMGALITY [Suspect]
     Active Substance: GALCANEZUMAB-GNLM
     Dosage: 120 MG, MONTHLY (1/M)
     Route: 058

REACTIONS (26)
  - Blindness unilateral [Unknown]
  - Eye injury [Recovering/Resolving]
  - Joint injury [Unknown]
  - Restless legs syndrome [Recovered/Resolved]
  - Balance disorder [Unknown]
  - Fall [Recovering/Resolving]
  - Insomnia [Not Recovered/Not Resolved]
  - Thinking abnormal [Unknown]
  - Nausea [Unknown]
  - Vomiting [Unknown]
  - Diarrhoea [Unknown]
  - Abdominal pain upper [Not Recovered/Not Resolved]
  - Decreased appetite [Not Recovered/Not Resolved]
  - Nasal injury [Unknown]
  - Erythema [Unknown]
  - Tooth loss [Recovering/Resolving]
  - Weight decreased [Unknown]
  - Tremor [Unknown]
  - Abdominal discomfort [Not Recovered/Not Resolved]
  - Illness [Unknown]
  - Gait disturbance [Unknown]
  - Feeling abnormal [Unknown]
  - Migraine [Unknown]
  - Prescribed underdose [Unknown]
  - Hypersensitivity [Unknown]
  - Injection site pain [Unknown]

NARRATIVE: CASE EVENT DATE: 20211101
